FAERS Safety Report 4281176-6 (Version None)
Quarter: 2004Q1

REPORT INFORMATION
  Report Type: 
  Country: None (occurrence: None)
  Receive Date: 20040129
  Receipt Date: 20040127
  Transmission Date: 20041129
  Serious: Yes (Hospitalization)
  Sender: FDA-Public Use
  Company Number: WAES 0401FRA00066

PATIENT
  Age: 97 Year
  Sex: Female

DRUGS (3)
  1. LEVOTHYROXINE SODIUM [Concomitant]
     Indication: HYPOTHYROIDISM
     Route: 048
  2. COZAAR [Suspect]
     Indication: HYPERTENSION
     Route: 048
     Dates: end: 20030214
  3. TELMISARTAN [Suspect]
     Indication: HYPERTENSION
     Route: 048
     Dates: start: 20030215, end: 20030917

REACTIONS (2)
  - DRUG ERUPTION [None]
  - PEMPHIGOID [None]
